FAERS Safety Report 6814460-X (Version None)
Quarter: 2010Q3

REPORT INFORMATION
  Report Type: 
  Country: None (occurrence: None)
  Receive Date: 20100702
  Receipt Date: 20100621
  Transmission Date: 20110219
  Serious: Yes (Other)
  Sender: FDA-Public Use
  Company Number: PHHY2010US40711

PATIENT
  Sex: Female

DRUGS (2)
  1. EXJADE [Suspect]
     Indication: PANCYTOPENIA
     Dosage: 1250 MG, QD
     Route: 048
  2. FOLIC ACID [Concomitant]

REACTIONS (2)
  - MENORRHAGIA [None]
  - VAGINAL HAEMORRHAGE [None]
